FAERS Safety Report 16264716 (Version 1)
Quarter: 2019Q2

REPORT INFORMATION
  Report Type: Spontaneous
  Country: FR (occurrence: FR)
  Receive Date: 20190502
  Receipt Date: 20190502
  Transmission Date: 20190711
  Serious: Yes (Other)
  Sender: FDA-Public Use
  Company Number: FR-MYLANLABS-2019M1041849

PATIENT
  Age: 79 Year
  Sex: Female
  Weight: 100 kg

DRUGS (1)
  1. PIPERACILLIN,TAZOBACTAM MYLAN [Suspect]
     Active Substance: PIPERACILLIN SODIUM\TAZOBACTAM SODIUM
     Indication: UROSEPSIS
     Dosage: 4 DOSAGE FORM, QD
     Route: 042
     Dates: start: 20180119, end: 20180120

REACTIONS (2)
  - Erythema [Recovered/Resolved]
  - Pruritus [Recovered/Resolved]

NARRATIVE: CASE EVENT DATE: 20180120
